FAERS Safety Report 21474497 (Version 3)
Quarter: 2022Q4

REPORT INFORMATION
  Report Type: Spontaneous
  Country: US (occurrence: US)
  Receive Date: 20221018
  Receipt Date: 20221108
  Transmission Date: 20230113
  Serious: Yes (Hospitalization)
  Sender: FDA-Public Use
  Company Number: US-KARYOPHARM-2022KPT001203

PATIENT

DRUGS (10)
  1. XPOVIO [Suspect]
     Active Substance: SELINEXOR
     Indication: Plasma cell myeloma
     Dosage: 60 MG, WEEKLY
     Route: 048
     Dates: start: 20221003, end: 20221014
  2. ACYCLOVIR SODIUM [Concomitant]
     Active Substance: ACYCLOVIR SODIUM
  3. DECADRON [Concomitant]
     Active Substance: DEXAMETHASONE
  4. FENTANYL TRANSDERMAL SYSTEM [Concomitant]
     Active Substance: FENTANYL
  5. OLANZAPINE [Concomitant]
     Active Substance: OLANZAPINE
  6. ZOFRAN [Concomitant]
     Active Substance: ONDANSETRON HYDROCHLORIDE
  7. OXYCONTIN [Concomitant]
     Active Substance: OXYCODONE HYDROCHLORIDE
  8. COMPAZINE [Concomitant]
     Active Substance: PROCHLORPERAZINE MALEATE
  9. RAMIPRIL [Concomitant]
     Active Substance: RAMIPRIL
  10. WARFARIN [Concomitant]
     Active Substance: WARFARIN

REACTIONS (7)
  - Dyspnoea [Unknown]
  - Disturbance in attention [Unknown]
  - Feeling abnormal [Unknown]
  - Fatigue [Unknown]
  - Dizziness [Unknown]
  - Dehydration [Unknown]
  - Asthenia [Unknown]

NARRATIVE: CASE EVENT DATE: 20221001
